FAERS Safety Report 11999205 (Version 2)
Quarter: 2016Q2

REPORT INFORMATION
  Report Type: Spontaneous
  Country: US (occurrence: US)
  Receive Date: 20160204
  Receipt Date: 20160412
  Transmission Date: 20160815
  Serious: Yes (Hospitalization)
  Sender: FDA-Public Use
  Company Number: US-ROCHE-1705918

PATIENT
  Sex: Male

DRUGS (2)
  1. XELODA [Suspect]
     Active Substance: CAPECITABINE
     Indication: NEOPLASM MALIGNANT
     Dosage: 7 DAYS THEN OFF 7 DAYS, RESUME CYCLE
     Route: 048
     Dates: start: 20150727
  2. XELODA [Suspect]
     Active Substance: CAPECITABINE
     Dosage: 7 DAYS THEN OFF 7 DAYS, RESUME CYCLE
     Route: 048
     Dates: start: 20150624

REACTIONS (3)
  - Biliary drainage [Unknown]
  - Head injury [Unknown]
  - Staphylococcal infection [Unknown]
